FAERS Safety Report 6274810-2 (Version None)
Quarter: 2009Q3

REPORT INFORMATION
  Report Type: 
  Country: None (occurrence: None)
  Receive Date: 20090721
  Receipt Date: 20090708
  Transmission Date: 20100115
  Serious: Yes (Other)
  Sender: FDA-Public Use
  Company Number: US-TEVA-194124USA

PATIENT
  Age: 63 Year
  Sex: Female

DRUGS (6)
  1. PROPOFOL [Suspect]
     Indication: COLONOSCOPY
     Route: 042
     Dates: start: 20090505, end: 20090505
  2. PROPOFOL [Suspect]
     Indication: GENERAL ANAESTHESIA
     Dosage: 120 MCG/KG/MIN
     Route: 041
     Dates: start: 20090505, end: 20090505
  3. MIDAZOLAM HCL [Suspect]
     Indication: ANAESTHETIC PREMEDICATION
     Route: 042
     Dates: start: 20090505, end: 20090505
  4. GLYCOPYRROLATE INJECTION, USP [Suspect]
     Indication: ANAESTHETIC PREMEDICATION
     Route: 042
     Dates: start: 20090505, end: 20090505
  5. LIDOCAINE [Suspect]
     Indication: GENERAL ANAESTHESIA
     Route: 042
     Dates: start: 20090505, end: 20090505
  6. FENTANYL-100 [Suspect]
     Indication: GENERAL ANAESTHESIA
     Route: 042
     Dates: start: 20090505, end: 20090505

REACTIONS (3)
  - CHILLS [None]
  - HEADACHE [None]
  - PRODUCT CONTAMINATION MICROBIAL [None]
